FAERS Safety Report 10277353 (Version 3)
Quarter: 2015Q3

REPORT INFORMATION
  Report Type: Spontaneous
  Country: US (occurrence: US)
  Receive Date: 20140703
  Receipt Date: 20150709
  Transmission Date: 20151125
  Serious: No
  Sender: FDA-Public Use
  Company Number: US-MALLINCKRODT-T201402553

PATIENT
  Age: 48 Year
  Sex: Male

DRUGS (1)
  1. ROXICODONE [Suspect]
     Active Substance: OXYCODONE HYDROCHLORIDE
     Indication: PAIN
     Dosage: 30 MG, BID
     Route: 048
     Dates: start: 201404, end: 201405

REACTIONS (3)
  - Drug ineffective [Recovered/Resolved]
  - Muscle twitching [Recovered/Resolved]
  - Grunting [Recovered/Resolved]

NARRATIVE: CASE EVENT DATE: 201404
